FAERS Safety Report 9104045 (Version 1)
Quarter: 2013Q1

REPORT INFORMATION
  Report Type: Spontaneous
  Country: MX (occurrence: MX)
  Receive Date: 20130219
  Receipt Date: 20130219
  Transmission Date: 20140127
  Serious: Yes (Hospitalization)
  Sender: FDA-Public Use
  Company Number: 2013SP002497

PATIENT
  Age: 32 Year
  Sex: Male
  Weight: 77 kg

DRUGS (17)
  1. FLUOROURACIL [Suspect]
     Indication: HEAD AND NECK CANCER
     Route: 042
     Dates: start: 20111205, end: 20111208
  2. FLUOROURACIL [Suspect]
     Indication: TONGUE NEOPLASM
     Route: 042
     Dates: start: 20111205, end: 20111208
  3. FLUOROURACIL [Suspect]
     Indication: HEAD AND NECK CANCER
     Dates: start: 20120204
  4. FLUOROURACIL [Suspect]
     Indication: TONGUE NEOPLASM
     Dates: start: 20120204
  5. CISPLATIN [Suspect]
     Indication: HEAD AND NECK CANCER
     Route: 042
     Dates: start: 20111205, end: 20111205
  6. CISPLATIN [Suspect]
     Indication: TONGUE NEOPLASM
     Route: 042
     Dates: start: 20111205, end: 20111205
  7. CISPLATIN [Suspect]
     Indication: HEAD AND NECK CANCER
     Dates: start: 20120204
  8. CISPLATIN [Suspect]
     Indication: TONGUE NEOPLASM
     Dates: start: 20120204
  9. MORPHINE [Concomitant]
     Dates: start: 20111230, end: 20120115
  10. PARACETAMOL [Concomitant]
     Dates: start: 20111230, end: 20120115
  11. DEXKETOPROFEN [Concomitant]
     Dates: start: 20111230, end: 20120115
  12. CLINDAMYCIN HYDROCHLORIDE [Concomitant]
     Dates: start: 20111230, end: 20120114
  13. NIMESULIDE [Concomitant]
     Dates: start: 20111230, end: 20120115
  14. CEFTRIAXONE SODIUM [Concomitant]
     Dates: start: 20111230, end: 20120114
  15. TRANSTEC [Concomitant]
     Dates: start: 20111231, end: 20120115
  16. TRANSTEC [Concomitant]
  17. MORPHINE SULFATE PENTAHYDRATE [Concomitant]
     Dates: start: 20111231, end: 20120115

REACTIONS (2)
  - Tumour necrosis [Not Recovered/Not Resolved]
  - Neck pain [Not Recovered/Not Resolved]
